FAERS Safety Report 6651873-3 (Version None)
Quarter: 2010Q1

REPORT INFORMATION
  Report Type: 
  Country: None (occurrence: None)
  Receive Date: 20100325
  Receipt Date: 20100315
  Transmission Date: 20100710
  Serious: Yes (Other)
  Sender: FDA-Public Use
  Company Number: PHHY2010US16244

PATIENT
  Sex: Female

DRUGS (1)
  1. EXJADE [Suspect]
     Dosage: 500 MG, QD
     Route: 048

REACTIONS (3)
  - ABDOMINAL DISCOMFORT [None]
  - CROHN'S DISEASE [None]
  - DIARRHOEA [None]
